FAERS Safety Report 19494503 (Version 1)
Quarter: 2021Q3

REPORT INFORMATION
  Report Type: Spontaneous
  Country: GB (occurrence: GB)
  Receive Date: 20210706
  Receipt Date: 20210706
  Transmission Date: 20211014
  Serious: Yes (Other)
  Sender: FDA-Public Use
  Company Number: GB-AUROBINDO-AUR-APL-2021-027899

PATIENT
  Age: 24 Year
  Sex: Male
  Weight: 84 kg

DRUGS (7)
  1. BETNOVATE [Concomitant]
     Active Substance: BETAMETHASONE
     Indication: ILL-DEFINED DISORDER
     Dosage: UNK UNK, TWO TIMES A DAY (FOR ONE WEEK)
     Route: 065
     Dates: start: 20210329, end: 20210426
  2. FEXOFENADINE [Concomitant]
     Active Substance: FEXOFENADINE HYDROCHLORIDE
     Indication: ILL-DEFINED DISORDER
     Dosage: UNK UNK, DAILY (TAKE ONE FOR ITCH)
     Route: 065
     Dates: start: 20210616
  3. FLUCLOXACILLIN [Concomitant]
     Active Substance: FLUCLOXACILLIN
     Indication: ILL-DEFINED DISORDER
     Dosage: UNK (TAKE ONE 4 TIMES/DAY)
     Route: 065
     Dates: start: 20210616, end: 20210623
  4. HYDROCORTISONE. [Concomitant]
     Active Substance: HYDROCORTISONE
     Indication: ILL-DEFINED DISORDER
     Dosage: UNK (USE ON FACE IF NEEDED)
     Route: 065
     Dates: start: 20210329, end: 20210426
  5. CLOTRIMAZOLE. [Concomitant]
     Active Substance: CLOTRIMAZOLE
     Indication: ILL-DEFINED DISORDER
     Dosage: UNK (APPLY THINLY ONCE AT NIGHT TO AFFECTED AREAS OF...)
     Route: 065
     Dates: start: 20210513, end: 20210523
  6. PHENOXYMETHYLPENICILLIN [Concomitant]
     Active Substance: PENICILLIN V
     Indication: ILL-DEFINED DISORDER
     Dosage: UNK UNK, FOUR TIMES/DAY (TAKE TWO TABLETS)
     Route: 065
     Dates: start: 20210513, end: 20210523
  7. SERTRALINE [Suspect]
     Active Substance: SERTRALINE HYDROCHLORIDE
     Indication: PRODUCT USED FOR UNKNOWN INDICATION
     Dosage: 50 MILLIGRAM, ONCE A DAY
     Route: 065
     Dates: start: 20210616

REACTIONS (1)
  - Contusion [Unknown]

NARRATIVE: CASE EVENT DATE: 20210623
